FAERS Safety Report 9729559 (Version 1)
Quarter: 2013Q4

REPORT INFORMATION
  Report Type: Spontaneous
  Country: US (occurrence: US)
  Receive Date: 20131204
  Receipt Date: 20131204
  Transmission Date: 20140711
  Serious: No
  Sender: FDA-Public Use
  Company Number: US-ENDO PHARMACEUTICALS INC.-OXAT20110006

PATIENT
  Sex: Female

DRUGS (3)
  1. OXYCODONE/ACETAMINOPHEN [Suspect]
     Indication: PAIN
     Dosage: UNKNOWN
     Route: 048
     Dates: start: 201010
  2. EFFEXOR XR [Concomitant]
     Indication: ANXIETY
     Dosage: UNKNOWN
     Route: 048
  3. ATIVAN [Concomitant]
     Indication: INSOMNIA
     Dosage: UNKNOWN
     Route: 048

REACTIONS (1)
  - Drug ineffective [Unknown]
